FAERS Safety Report 24786035 (Version 2)
Quarter: 2025Q1

REPORT INFORMATION
  Report Type: Spontaneous
  Country: US (occurrence: US)
  Receive Date: 20241229
  Receipt Date: 20250129
  Transmission Date: 20250409
  Serious: No
  Sender: SANOFI AVENTIS
  Company Number: US-SA-2024SA382680

PATIENT
  Age: 53 Year
  Sex: Female

DRUGS (8)
  1. DUPIXENT [Suspect]
     Active Substance: DUPILUMAB
     Indication: Dermatitis atopic
     Dosage: 300 MG, QOW
     Route: 058
  2. CYMBALTA [Concomitant]
     Active Substance: DULOXETINE HYDROCHLORIDE
  3. HYDROCODONE [Concomitant]
     Active Substance: HYDROCODONE
  4. VITAMINS NOS [Concomitant]
     Active Substance: VITAMINS
  5. OZEMPIC [Concomitant]
     Active Substance: SEMAGLUTIDE
  6. PREGABALIN [Concomitant]
     Active Substance: PREGABALIN
  7. LOSARTAN POTASSIUM [Concomitant]
     Active Substance: LOSARTAN POTASSIUM
  8. ATORVASTATIN CALCIUM [Concomitant]
     Active Substance: ATORVASTATIN CALCIUM

REACTIONS (3)
  - Eyelid skin dryness [Not Recovered/Not Resolved]
  - Rash [Not Recovered/Not Resolved]
  - Dry eye [Unknown]
